FAERS Safety Report 5676335-1 (Version None)
Quarter: 2008Q1

REPORT INFORMATION
  Report Type: 
  Country: None (occurrence: None)
  Receive Date: 20080321
  Receipt Date: 20080311
  Transmission Date: 20080703
  Serious: Yes (Other)
  Sender: FDA-Public Use
  Company Number: US-PFIZER INC-2008022382

PATIENT
  Sex: Female
  Weight: 59.09 kg

DRUGS (8)
  1. NEURONTIN [Suspect]
     Indication: HYPOAESTHESIA
  2. GABAPENTIN [Suspect]
     Indication: NEURALGIA
  3. GABAPENTIN [Suspect]
     Indication: BURNING SENSATION
  4. LYRICA [Suspect]
     Indication: NEURALGIA
  5. CENTRUM SILVER [Concomitant]
  6. CALTRATE [Concomitant]
  7. ALBUTEROL [Concomitant]
  8. FLOVENT [Concomitant]

REACTIONS (11)
  - BURNING SENSATION [None]
  - DYSPNOEA [None]
  - FALL [None]
  - FEELING ABNORMAL [None]
  - HYPOAESTHESIA [None]
  - IMPAIRED DRIVING ABILITY [None]
  - LOWER LIMB FRACTURE [None]
  - NEURALGIA [None]
  - PARAESTHESIA [None]
  - SOMNOLENCE [None]
  - SPEECH DISORDER [None]
